FAERS Safety Report 13527999 (Version 1)
Quarter: 2017Q2

REPORT INFORMATION
  Report Type: Spontaneous
  Country: US (occurrence: US)
  Receive Date: 20170509
  Receipt Date: 20170509
  Transmission Date: 20170830
  Serious: No
  Sender: FDA-Public Use
  Company Number: US-PFIZER INC-2017201554

PATIENT
  Sex: Male

DRUGS (2)
  1. XELJANZ [Concomitant]
     Active Substance: TOFACITINIB CITRATE
     Dosage: 5 MG, 1X/DAY
  2. XELJANZ XR [Suspect]
     Active Substance: TOFACITINIB CITRATE
     Dosage: 11 MG, DAILY

REACTIONS (13)
  - Musculoskeletal stiffness [Unknown]
  - Joint swelling [Unknown]
  - Dry skin [Unknown]
  - Transaminases increased [Unknown]
  - Dry eye [Unknown]
  - Intentional product use issue [Unknown]
  - Back pain [Unknown]
  - Dry mouth [Unknown]
  - Gait disturbance [Unknown]
  - Blood pressure increased [Unknown]
  - Diarrhoea [Unknown]
  - Arthralgia [Unknown]
  - Weight increased [Unknown]
